FAERS Safety Report 8178297-4 (Version None)
Quarter: 2012Q1

REPORT INFORMATION
  Report Type: 
  Country: None (occurrence: None)
  Receive Date: 20120126
  Receipt Date: 20111026
  Transmission Date: 20120608
  Serious: No
  Sender: FDA-Public Use
  Company Number: PHEH2011US08266

PATIENT
  Age: 53 Year
  Sex: Female

DRUGS (3)
  1. AFINITOR [Suspect]
     Indication: NEOPLASM MALIGNANT
     Dosage: 5 MG, QD, ORAL
     Route: 048
  2. AFINITOR [Suspect]
     Indication: RENAL CANCER
     Dosage: 5 MG, QD, ORAL
     Route: 048
  3. AFINITOR [Suspect]
     Indication: MALIGNANT URINARY TRACT NEOPLASM
     Dosage: 5 MG, QD, ORAL
     Route: 048

REACTIONS (1)
  - MEMORY IMPAIRMENT [None]
